FAERS Safety Report 4778205-X (Version None)
Quarter: 2005Q3

REPORT INFORMATION
  Report Type: 
  Country: None (occurrence: None)
  Receive Date: 20050926
  Receipt Date: 20020418
  Transmission Date: 20060218
  Serious: Yes (Other)
  Sender: FDA-Public Use
  Company Number: US-BRISTOL-MYERS SQUIBB COMPANY-11834827

PATIENT
  Age: 37 Year
  Sex: Female

DRUGS (3)
  1. STADOL [Suspect]
     Indication: HEADACHE
     Route: 045
     Dates: start: 19990101, end: 20000501
  2. STADOL [Suspect]
     Indication: HEADACHE
     Route: 030
  3. PHENERGAN [Concomitant]
     Route: 030

REACTIONS (1)
  - DEPENDENCE [None]
